FAERS Safety Report 8567721-0 (Version None)
Quarter: 2012Q3

REPORT INFORMATION
  Report Type: 
  Country: None (occurrence: None)
  Receive Date: 20120803
  Receipt Date: 20120730
  Transmission Date: 20120928
  Serious: Yes (Hospitalization, Disabling, Other)
  Sender: FDA-Public Use
  Company Number: US-009507513-2011SP014621

PATIENT

DRUGS (10)
  1. KEPPRA [Concomitant]
     Indication: MIGRAINE
     Dosage: 1500 MG, QD
     Dates: start: 20080901
  2. NUVARING [Suspect]
     Indication: CONTRACEPTION
  3. NUVARING [Suspect]
     Indication: MIGRAINE
     Dates: start: 20080101, end: 20090426
  4. XANAX [Concomitant]
     Indication: MIGRAINE
     Dosage: UNK UNK, PRN
     Dates: start: 20080901
  5. DIAMOX [Concomitant]
     Indication: MIGRAINE
     Dosage: UNK UNK, QD
  6. ACETAMINOPHEN/HYDROCODONE BITARTRATE [Concomitant]
     Indication: MIGRAINE
     Dosage: UNK UNK, PRN
  7. SKELAXIN [Concomitant]
     Indication: MIGRAINE
     Dosage: UNK UNK, QD
     Dates: start: 20080901
  8. ZANAFLEX [Concomitant]
     Indication: MIGRAINE
     Dosage: UNK UNK, QD
     Dates: start: 20080901
  9. AXERT [Concomitant]
     Indication: MIGRAINE
     Dosage: UNK UNK, PRN
     Dates: start: 20080901
  10. LOVENOX [Suspect]
     Indication: PULMONARY EMBOLISM

REACTIONS (30)
  - DYSPNOEA [None]
  - MIGRAINE [None]
  - PAIN IN EXTREMITY [None]
  - PNEUMONIA [None]
  - CHEST PAIN [None]
  - HEAD INJURY [None]
  - SYNCOPE [None]
  - ENDOMETRIOSIS [None]
  - SINUS BRADYCARDIA [None]
  - PRESYNCOPE [None]
  - DEEP VEIN THROMBOSIS [None]
  - MALAISE [None]
  - SPEECH DISORDER [None]
  - CHEST DISCOMFORT [None]
  - POLYCYSTIC OVARIES [None]
  - PULMONARY EMBOLISM [None]
  - NAUSEA [None]
  - DIZZINESS [None]
  - GENITAL INFECTION FUNGAL [None]
  - OFF LABEL USE [None]
  - HEMIPARESIS [None]
  - HAEMATEMESIS [None]
  - HYPOTENSION [None]
  - BLOOD TRIGLYCERIDES INCREASED [None]
  - BLOOD POTASSIUM ABNORMAL [None]
  - CONFUSIONAL STATE [None]
  - MENSTRUATION IRREGULAR [None]
  - FATIGUE [None]
  - HEADACHE [None]
  - SINUS DISORDER [None]
